FAERS Safety Report 20098126 (Version 2)
Quarter: 2021Q4

REPORT INFORMATION
  Report Type: Spontaneous
  Country: US (occurrence: US)
  Receive Date: 20211122
  Receipt Date: 20211216
  Transmission Date: 20220303
  Serious: No
  Sender: FDA-Public Use
  Company Number: US-SA-SAC20211118000679

PATIENT
  Sex: Female

DRUGS (1)
  1. DUPIXENT [Suspect]
     Active Substance: DUPILUMAB
     Indication: Dermatitis atopic
     Dosage: 300 MG, QOW
     Route: 058
     Dates: start: 20210604

REACTIONS (5)
  - Rash [Unknown]
  - Rash pruritic [Unknown]
  - Skin exfoliation [Unknown]
  - Feeling jittery [Unknown]
  - Migraine [Unknown]
